FAERS Safety Report 17547626 (Version 2)
Quarter: 2020Q1

REPORT INFORMATION
  Report Type: Spontaneous
  Country: CN (occurrence: CN)
  Receive Date: 20200316
  Receipt Date: 20200318
  Transmission Date: 20200409
  Serious: Yes (Disabling)
  Sender: FDA-Public Use
  Company Number: CN-009507513-2003CHN003012

PATIENT
  Age: 31 Year
  Sex: Male

DRUGS (4)
  1. SODIUM CHLORIDE. [Concomitant]
     Active Substance: SODIUM CHLORIDE
     Indication: INFECTION PROPHYLAXIS
     Dosage: 100 MILLILITER, BID; AS SOLVENT
     Route: 041
     Dates: start: 20200302, end: 20200304
  2. LIAN HUA QING WEN KE LI [Concomitant]
     Indication: DETOXIFICATION
     Dosage: 6 GRAM
     Route: 048
     Dates: start: 20200229, end: 20200305
  3. TIENAM [Suspect]
     Active Substance: CILASTATIN SODIUM\IMIPENEM
     Indication: INFECTION PROPHYLAXIS
     Dosage: UNK UNK, BID
     Route: 041
     Dates: start: 20200302, end: 20200304
  4. AMBROXOL HYDROCHLORIDE [Concomitant]
     Active Substance: AMBROXOL HYDROCHLORIDE
     Indication: PRODUCTIVE COUGH
     Dosage: 30 MILLIGRAM
     Route: 041
     Dates: start: 20200229, end: 20200305

REACTIONS (3)
  - Mania [Recovering/Resolving]
  - Dysphoria [Recovering/Resolving]
  - Body temperature abnormal [Unknown]

NARRATIVE: CASE EVENT DATE: 20200304
